FAERS Safety Report 17388071 (Version 5)
Quarter: 2020Q2

REPORT INFORMATION
  Report Type: Report from Study
  Country: NZ (occurrence: NZ)
  Receive Date: 20200207
  Receipt Date: 20200522
  Transmission Date: 20200713
  Serious: Yes (Hospitalization)
  Sender: FDA-Public Use
  Company Number: NZ-BEIGENE AUS PTY LTD-BGN-2020-000174

PATIENT

DRUGS (3)
  1. BGB-3111 [Suspect]
     Active Substance: ZANUBRUTINIB
     Indication: MARGINAL ZONE LYMPHOMA
     Dosage: 160 MILLIGRAM, BID
     Route: 048
     Dates: start: 20190606, end: 20200205
  2. TEMAZEPAMUM [Concomitant]
     Indication: ANXIETY
  3. BGB-3111 [Suspect]
     Active Substance: ZANUBRUTINIB
     Dosage: 160 MILLIGRAM, BID
     Route: 048
     Dates: start: 20200219

REACTIONS (1)
  - Atrial flutter [Recovered/Resolved]

NARRATIVE: CASE EVENT DATE: 20200129
